FAERS Safety Report 6419622-1 (Version None)
Quarter: 2009Q4

REPORT INFORMATION
  Report Type: 
  Country: None (occurrence: None)
  Receive Date: 20091029
  Receipt Date: 20091020
  Transmission Date: 20100525
  Serious: Yes (Other)
  Sender: FDA-Public Use
  Company Number: A0813832A

PATIENT
  Age: 69 Year
  Sex: Female

DRUGS (3)
  1. NICODERM [Suspect]
     Indication: SMOKING CESSATION THERAPY
     Route: 062
     Dates: start: 20090901, end: 20090920
  2. EQUATE NICOTINE PATCH [Suspect]
     Indication: SMOKING CESSATION THERAPY
     Route: 062
     Dates: start: 20090901, end: 20091001
  3. HYDROCHLOROTHIAZIDE [Concomitant]
     Route: 048

REACTIONS (14)
  - ABNORMAL DREAMS [None]
  - APPLICATION SITE PAIN [None]
  - APPLICATION SITE RASH [None]
  - ASTHENIA [None]
  - CHEST PAIN [None]
  - FEELING ABNORMAL [None]
  - HEADACHE [None]
  - INSOMNIA [None]
  - MIDDLE INSOMNIA [None]
  - NAUSEA [None]
  - NICOTINE DEPENDENCE [None]
  - NIGHTMARE [None]
  - PAIN [None]
  - TOBACCO POISONING [None]
